FAERS Safety Report 10357099 (Version 3)
Quarter: 2014Q3

REPORT INFORMATION
  Report Type: Spontaneous
  Country: DK (occurrence: FR)
  Receive Date: 20140801
  Receipt Date: 20140819
  Transmission Date: 20150326
  Serious: Yes (Hospitalization)
  Sender: FDA-Public Use
  Company Number: FR-FRI-1000069499

PATIENT
  Age: 88 Year
  Sex: Male

DRUGS (13)
  1. LASILIX [Suspect]
     Active Substance: FUROSEMIDE
     Indication: CARDIAC FAILURE
     Dosage: 180 MG
     Route: 048
     Dates: start: 20140529, end: 20140604
  2. IMOVANE [Suspect]
     Active Substance: ZOPICLONE
     Indication: INSOMNIA
     Dosage: 1 DF
     Route: 048
     Dates: end: 20140531
  3. LANSOYL [Concomitant]
     Active Substance: MINERAL OIL
  4. TRANSIPEG [Concomitant]
     Active Substance: POLYETHYLENE GLYCOL 3350
  5. CORDARONE [Suspect]
     Active Substance: AMIODARONE HYDROCHLORIDE
     Indication: ATRIAL FIBRILLATION
     Dosage: 0.7143 DF
     Route: 048
     Dates: end: 20140602
  6. ESCITALOPRAM [Suspect]
     Active Substance: ESCITALOPRAM OXALATE
     Indication: DEPRESSED MOOD
     Dosage: 10 MG
     Route: 048
     Dates: end: 20140602
  7. DIFFU K [Suspect]
     Active Substance: POTASSIUM CHLORIDE
     Indication: HYPOKALAEMIA
     Dosage: 72 DF
     Route: 048
     Dates: start: 20140530, end: 20140602
  8. TAHOR [Suspect]
     Active Substance: ATORVASTATIN CALCIUM
     Indication: INFARCTION
     Dosage: 10 MG
     Route: 048
  9. PARACETAMOL ARROW [Suspect]
     Active Substance: ACETAMINOPHEN
     Indication: PAIN
     Route: 048
     Dates: end: 20140530
  10. PREVISCAN [Suspect]
     Active Substance: FLUINDIONE
     Indication: ATRIAL FIBRILLATION
     Dosage: 0.5 DF
     Route: 048
     Dates: end: 20140601
  11. VOLTARENE [Concomitant]
     Active Substance: DICLOFENAC SODIUM
  12. SERESTA [Concomitant]
     Active Substance: OXAZEPAM
  13. TAREG [Suspect]
     Active Substance: VALSARTAN
     Indication: HYPERTENSION
     Dosage: 40 MG
     Route: 048
     Dates: end: 20140604

REACTIONS (2)
  - Hepatitis [Recovering/Resolving]
  - International normalised ratio increased [Recovered/Resolved]

NARRATIVE: CASE EVENT DATE: 20140602
